FAERS Safety Report 18459231 (Version 5)
Quarter: 2021Q1

REPORT INFORMATION
  Report Type: Spontaneous
  Country: US (occurrence: US)
  Receive Date: 20201103
  Receipt Date: 20210127
  Transmission Date: 20210419
  Serious: Yes (Death, Hospitalization)
  Sender: FDA-Public Use
  Company Number: US-PFIZER INC-2020418932

PATIENT
  Age: 84 Year
  Sex: Male
  Weight: 97.98 kg

DRUGS (3)
  1. VYNDAMAX [Suspect]
     Active Substance: TAFAMIDIS
     Dosage: 61 MG, 1X/DAY
     Route: 048
  2. VYNDAMAX [Suspect]
     Active Substance: TAFAMIDIS
     Indication: CARDIAC DISORDER
     Dosage: 61 MG, DAILY
     Route: 048
  3. VYNDAMAX [Suspect]
     Active Substance: TAFAMIDIS
     Indication: AMYLOIDOSIS
     Dosage: 61 MG, 1X/DAY
     Route: 048

REACTIONS (4)
  - Oxygen saturation decreased [Recovered/Resolved]
  - Respiratory rate decreased [Recovered/Resolved]
  - COVID-19 [Fatal]
  - Fluid retention [Recovered/Resolved]

NARRATIVE: CASE EVENT DATE: 20201018
